FAERS Safety Report 5000916-1 (Version None)
Quarter: 2006Q2

REPORT INFORMATION
  Report Type: 
  Country: None (occurrence: None)
  Receive Date: 20060512
  Receipt Date: 20050829
  Transmission Date: 20061013
  Serious: Yes (Hospitalization, Disabling)
  Sender: FDA-Public Use
  Company Number: US-MERCK-0508USA04928

PATIENT
  Age: 36 Year
  Sex: Male
  Weight: 159 kg

DRUGS (4)
  1. VIOXX [Suspect]
     Indication: CARPAL TUNNEL SYNDROME
     Route: 048
     Dates: start: 20010601, end: 20030101
  2. VIOXX [Suspect]
     Indication: ARTHRITIS
     Route: 048
     Dates: start: 20010601, end: 20030101
  3. COZAAR [Concomitant]
     Route: 065
  4. METOPROLOL [Concomitant]
     Route: 065

REACTIONS (6)
  - ANGINA PECTORIS [None]
  - ARTHROPOD BITE [None]
  - HERNIA [None]
  - INJURY [None]
  - PNEUMONIA [None]
  - THROMBOSIS [None]
